FAERS Safety Report 15222233 (Version 1)
Quarter: 2018Q3

REPORT INFORMATION
  Report Type: Spontaneous
  Country: GB (occurrence: GB)
  Receive Date: 20180731
  Receipt Date: 20180731
  Transmission Date: 20181010
  Serious: Yes (Death, Life-Threatening, Hospitalization, Other)
  Sender: FDA-Public Use
  Company Number: GB-SA-2018SA207234

PATIENT
  Age: 62 Year
  Sex: Male

DRUGS (2)
  1. OXALIPLATIN. [Suspect]
     Active Substance: OXALIPLATIN
     Indication: COLORECTAL CANCER
     Dosage: UNK
     Dates: start: 201603
  2. PANITUMUMAB [Suspect]
     Active Substance: PANITUMUMAB
     Indication: COLORECTAL CANCER
     Dosage: UNK
     Dates: start: 201605

REACTIONS (8)
  - Pulmonary oedema [Fatal]
  - Exercise tolerance decreased [Fatal]
  - Pneumocystis jirovecii pneumonia [Fatal]
  - Cough [Fatal]
  - Pyrexia [Fatal]
  - Interstitial lung disease [Fatal]
  - Lymphangiosis carcinomatosa [Fatal]
  - Dyspnoea [Fatal]

NARRATIVE: CASE EVENT DATE: 201705
